FAERS Safety Report 16928689 (Version 1)
Quarter: 2019Q4

REPORT INFORMATION
  Report Type: Spontaneous
  Country: US (occurrence: US)
  Receive Date: 20191017
  Receipt Date: 20191017
  Transmission Date: 20200122
  Serious: No
  Sender: FDA-Public Use
  Company Number: US-TEVA-2019-US-1123305

PATIENT
  Sex: Male

DRUGS (4)
  1. RASAGILINE. [Suspect]
     Active Substance: RASAGILINE
     Route: 065
  2. RYTARY [Suspect]
     Active Substance: CARBIDOPA\LEVODOPA
     Route: 065
  3. APOKYN [Suspect]
     Active Substance: APOMORPHINE HYDROCHLORIDE
     Route: 065
  4. ROPINIROLE. [Suspect]
     Active Substance: ROPINIROLE
     Route: 065

REACTIONS (3)
  - Dyskinesia [Unknown]
  - Insomnia [Unknown]
  - Drug ineffective [Unknown]
